FAERS Safety Report 6010764-1 (Version None)
Quarter: 2008Q4

REPORT INFORMATION
  Report Type: 
  Country: None (occurrence: None)
  Receive Date: 20081218
  Receipt Date: 20081211
  Transmission Date: 20090506
  Serious: Yes (Other)
  Sender: FDA-Public Use
  Company Number: US-BAYER-200814856BCC

PATIENT
  Age: 77 Year
  Sex: Female

DRUGS (2)
  1. ASPIRIN [Suspect]
     Indication: ISCHAEMIC HEART DISEASE PROPHYLAXIS
     Dates: end: 20081001
  2. PLAVIX [Suspect]
     Indication: ISCHAEMIC HEART DISEASE PROPHYLAXIS
     Route: 048
     Dates: start: 20071001

REACTIONS (2)
  - CONTUSION [None]
  - TRANSIENT ISCHAEMIC ATTACK [None]
